FAERS Safety Report 5171085-2 (Version None)
Quarter: 2006Q4

REPORT INFORMATION
  Report Type: 
  Country: None (occurrence: None)
  Receive Date: 20061213
  Receipt Date: 20061108
  Transmission Date: 20070319
  Serious: Yes (Hospitalization)
  Sender: FDA-Public Use
  Company Number: JP-GLAXOSMITHKLINE-B0446182A

PATIENT
  Age: 76 Year
  Sex: Female

DRUGS (3)
  1. CEFUROXIME AXETIL [Suspect]
     Indication: NASOPHARYNGITIS
     Route: 048
     Dates: start: 20061027, end: 20061029
  2. COLD MEDICINE (UNSPECIFIED) [Suspect]
     Route: 048
     Dates: start: 20061027, end: 20061029
  3. COLD MEDICINE (UNSPECIFIED) [Suspect]
     Indication: COUGH
     Route: 048
     Dates: start: 20061027, end: 20061029

REACTIONS (3)
  - CHOLELITHIASIS [None]
  - HEPATIC FUNCTION ABNORMAL [None]
  - ULTRASOUND LIVER ABNORMAL [None]
